FAERS Safety Report 25022571 (Version 1)
Quarter: 2025Q1

REPORT INFORMATION
  Report Type: Spontaneous
  Country: ES (occurrence: ES)
  Receive Date: 20250228
  Receipt Date: 20250228
  Transmission Date: 20250408
  Serious: Yes (Other)
  Sender: PADAGIS
  Company Number: ES-PADAGIS-2025PAD00228

PATIENT

DRUGS (1)
  1. IBUPROFEN [Suspect]
     Active Substance: IBUPROFEN
     Indication: Ear infection
     Route: 048
     Dates: start: 202308

REACTIONS (1)
  - Enterocolitis [Recovered/Resolved]
